FAERS Safety Report 22678253 (Version 4)
Quarter: 2023Q4

REPORT INFORMATION
  Report Type: Report from Study
  Country: US (occurrence: None)
  Receive Date: 20230706
  Receipt Date: 20231011
  Transmission Date: 20240110
  Serious: Yes (Hospitalization)
  Sender: FDA-Public Use
  Company Number: 2023A135391

PATIENT
  Age: 78 Year
  Sex: Female
  Weight: 94 kg

DRUGS (12)
  1. INVESTIGATIONAL PRODUCT [Suspect]
     Active Substance: INVESTIGATIONAL PRODUCT
     Indication: Ductal adenocarcinoma of pancreas
  2. INVESTIGATIONAL PRODUCT [Suspect]
     Active Substance: INVESTIGATIONAL PRODUCT
     Indication: Ductal adenocarcinoma of pancreas
     Route: 042
     Dates: start: 20230523, end: 20230523
  3. DURVALUMAB [Suspect]
     Active Substance: DURVALUMAB
     Indication: Ductal adenocarcinoma of pancreas
     Route: 042
     Dates: start: 20230523, end: 20230523
  4. GEMCITABINE [Concomitant]
     Active Substance: GEMCITABINE
     Route: 042
     Dates: start: 20230523, end: 20230523
  5. PACLITAXEL [Concomitant]
     Active Substance: PACLITAXEL
     Route: 042
     Dates: start: 20230523, end: 20230523
  6. ACETAMINOPHEN [Concomitant]
     Active Substance: ACETAMINOPHEN
     Indication: Pain
     Route: 048
  7. INSULIN GLARGINE [Concomitant]
     Active Substance: INSULIN GLARGINE
     Indication: Hyperglycaemia
     Dosage: 17 OTHER UNIT
     Route: 058
     Dates: start: 20230408
  8. MAGNESIUM ELEMENTAL [Concomitant]
     Indication: Hypomagnesaemia
     Route: 048
     Dates: start: 20230530
  9. ZOFRAN [Concomitant]
     Active Substance: ONDANSETRON HYDROCHLORIDE
     Indication: Prophylaxis of nausea and vomiting
     Route: 048
     Dates: start: 20230523
  10. IMODIUM [Concomitant]
     Active Substance: LOPERAMIDE HYDROCHLORIDE
     Indication: Diarrhoea
     Route: 048
     Dates: start: 20230530
  11. TRAZODONE [Concomitant]
     Active Substance: TRAZODONE HYDROCHLORIDE
     Indication: Insomnia
     Route: 048
     Dates: start: 20230530
  12. PREDNISONE [Concomitant]
     Active Substance: PREDNISONE
     Indication: Rash
     Route: 048
     Dates: start: 20230605

REACTIONS (1)
  - Drug reaction with eosinophilia and systemic symptoms [Recovered/Resolved]

NARRATIVE: CASE EVENT DATE: 20230602
